FAERS Safety Report 7930081-X (Version None)
Quarter: 2011Q4

REPORT INFORMATION
  Report Type: 
  Country: None (occurrence: None)
  Receive Date: 20111121
  Receipt Date: 20111116
  Transmission Date: 20120403
  Serious: Yes (Other)
  Sender: FDA-Public Use
  Company Number: AR-GENZYME-CLOF-1001750

PATIENT
  Sex: Female
  Weight: 20 kg

DRUGS (15)
  1. NEUPOGEN [Suspect]
     Dosage: 2ND CYCLE FLAG
     Route: 065
  2. CYTARABINE [Suspect]
     Dosage: 1ST CYCLE FLAG
     Route: 065
  3. CYCLOPHOSPHAMIDE [Suspect]
     Indication: ACUTE MONOCYTIC LEUKAEMIA
     Dosage: 300 MG, QDX5
     Route: 042
     Dates: start: 20110713
  4. FLUDARA [Suspect]
     Dosage: 2ND CYCLE FLAG
     Route: 065
  5. CYTARABINE [Suspect]
     Dosage: 2ND CYCLE FLAG
     Route: 065
  6. FLUDARA [Suspect]
     Indication: ACUTE MONOCYTIC LEUKAEMIA
     Dosage: 1 CYCLE FLAG-IDA
     Route: 065
  7. CYTARABINE [Suspect]
     Dosage: UNK
     Route: 065
  8. IDARUBICIN HCL [Suspect]
     Indication: ACUTE MONOCYTIC LEUKAEMIA
     Dosage: 1 CYCLE FLAG-IDA
     Route: 065
  9. ETOPOSIDE [Suspect]
     Indication: ACUTE MONOCYTIC LEUKAEMIA
     Dosage: 80 MG, QDX5
     Route: 042
     Dates: start: 20110713
  10. CYTARABINE [Suspect]
     Indication: ACUTE MONOCYTIC LEUKAEMIA
     Dosage: 1 CYCLE FLAG-IDA
     Route: 065
  11. NEUPOGEN [Suspect]
     Dosage: 1ST CYCLE FLAG
     Route: 065
  12. CLOLAR [Suspect]
     Indication: ACUTE MONOCYTIC LEUKAEMIA
     Dosage: 30 MG, QDX5
     Route: 042
     Dates: start: 20110713
  13. FLUDARA [Suspect]
     Dosage: 1ST CYCLE FLAG
     Route: 065
  14. NEUPOGEN [Suspect]
     Indication: ACUTE MONOCYTIC LEUKAEMIA
     Dosage: 1 CYCLE FLAG-IDA
     Route: 065
  15. CLADRIBINE [Suspect]
     Indication: ACUTE MONOCYTIC LEUKAEMIA
     Dosage: UNK
     Route: 065

REACTIONS (1)
  - ACUTE MONOCYTIC LEUKAEMIA [None]
